FAERS Safety Report 9491236 (Version 1)
Quarter: 2013Q3

REPORT INFORMATION
  Report Type: Spontaneous
  Country: NZ (occurrence: NZ)
  Receive Date: 20130830
  Receipt Date: 20130830
  Transmission Date: 20140515
  Serious: Yes (Other)
  Sender: FDA-Public Use
  Company Number: NZ-PFIZER INC-2013247366

PATIENT
  Age: 26 Year
  Sex: Female

DRUGS (4)
  1. TRANEXAMIC ACID [Suspect]
  2. PARACETAMOL [Suspect]
  3. METRONIDAZOLE [Suspect]
  4. ZINACEF [Suspect]

REACTIONS (2)
  - Angioedema [Unknown]
  - Periorbital oedema [Unknown]
